FAERS Safety Report 6159121-8 (Version None)
Quarter: 2009Q2

REPORT INFORMATION
  Report Type: 
  Country: None (occurrence: None)
  Receive Date: 20090417
  Receipt Date: 20090406
  Transmission Date: 20091009
  Serious: Yes (Other)
  Sender: FDA-Public Use
  Company Number: US-JNJFOC-20090203983

PATIENT
  Sex: Female

DRUGS (8)
  1. REMICADE [Suspect]
     Indication: BEHCET'S SYNDROME
     Dosage: FOR 6 MONTHS
     Route: 042
  2. ADVIL [Concomitant]
  3. AMITRIPTILINE [Concomitant]
  4. AMBIEN [Concomitant]
  5. NEXIUM [Concomitant]
  6. OXYCODONE HCL [Concomitant]
  7. LEVOTHYROXINE SODIUM [Concomitant]
  8. ELAVIL [Concomitant]

REACTIONS (4)
  - CACHEXIA [None]
  - EPHELIDES [None]
  - MUSCLE ATROPHY [None]
  - MUSCLE CONTRACTIONS INVOLUNTARY [None]
